FAERS Safety Report 19570942 (Version 1)
Quarter: 2021Q3

REPORT INFORMATION
  Report Type: Other
  Country: US (occurrence: US)
  Receive Date: 20210716
  Receipt Date: 20210716
  Transmission Date: 20211014
  Serious: No
  Sender: FDA-Public Use
  Company Number: US-UROVANT SCIENCES GMBH-202105-URV-000217

PATIENT

DRUGS (1)
  1. GEMTESA [Suspect]
     Active Substance: VIBEGRON
     Indication: POLLAKIURIA
     Dosage: 75 MILLIGRAM, QD
     Route: 048

REACTIONS (3)
  - Urinary retention [Unknown]
  - Micturition urgency [Unknown]
  - Dry mouth [Unknown]
